FAERS Safety Report 21444340 (Version 2)
Quarter: 2022Q4

REPORT INFORMATION
  Report Type: Report from Study
  Country: US (occurrence: US)
  Receive Date: 20221012
  Receipt Date: 20221029
  Transmission Date: 20230113
  Serious: Yes (Hospitalization)
  Sender: FDA-Public Use
  Company Number: US-ABBVIE-4150705

PATIENT
  Sex: Female

DRUGS (2)
  1. RINVOQ [Suspect]
     Active Substance: UPADACITINIB
     Indication: Product used for unknown indication
     Route: 048
  2. RINVOQ [Suspect]
     Active Substance: UPADACITINIB
     Indication: Product used for unknown indication
     Dosage: EXTENDED RELEASE?FORM STRENGTH 15 MG
     Route: 048

REACTIONS (5)
  - Knee arthroplasty [Unknown]
  - Pain [Recovering/Resolving]
  - Pustule [Not Recovered/Not Resolved]
  - Cough [Not Recovered/Not Resolved]
  - Wound [Not Recovered/Not Resolved]
